FAERS Safety Report 5115883-X (Version None)
Quarter: 2006Q3

REPORT INFORMATION
  Report Type: 
  Country: None (occurrence: None)
  Receive Date: 20060927
  Receipt Date: 20060919
  Transmission Date: 20061208
  Serious: Yes (Hospitalization)
  Sender: FDA-Public Use
  Company Number: US-BRISTOL-MYERS SQUIBB COMPANY-13514666

PATIENT
  Age: 68 Year
  Sex: Male
  Weight: 58 kg

DRUGS (7)
  1. ERBITUX [Suspect]
     Indication: SMALL CELL CARCINOMA
     Route: 042
     Dates: start: 20060901, end: 20060915
  2. RESTORIL [Concomitant]
  3. TYLENOL [Concomitant]
  4. GUAIFENESIN [Concomitant]
  5. BENADRYL [Concomitant]
  6. COLACE [Concomitant]
  7. WELLBUTRIN [Concomitant]

REACTIONS (4)
  - CHILLS [None]
  - RESPIRATORY DISTRESS [None]
  - TREMOR [None]
  - VOMITING [None]
